FAERS Safety Report 8439845-X (Version None)
Quarter: 2012Q2

REPORT INFORMATION
  Report Type: 
  Country: None (occurrence: None)
  Receive Date: 20120615
  Receipt Date: 20120606
  Transmission Date: 20120825
  Serious: Yes (Hospitalization)
  Sender: FDA-Public Use
  Company Number: US-PERRIGO-12US004818

PATIENT
  Sex: Female
  Weight: 55.782 kg

DRUGS (7)
  1. PREMARIN [Concomitant]
     Indication: HOT FLUSH
     Dosage: UNK
     Route: 065
  2. COZAAR [Concomitant]
     Indication: HYPERTENSION
     Dosage: UNK
     Route: 065
  3. JANUVIA [Concomitant]
     Indication: DIABETES MELLITUS
     Dosage: UNK
     Route: 065
  4. GLIPIZIDE [Concomitant]
     Indication: DIABETES MELLITUS
     Dosage: UNK
     Route: 065
  5. FAMOTIDINE COMPLETE BERRY 321 [Suspect]
     Indication: DYSPEPSIA
     Dosage: 1 TABLET, SINGLE
     Route: 048
     Dates: start: 20120403, end: 20120403
  6. TRIAMTERENE [Concomitant]
     Indication: BLOOD PRESSURE ABNORMAL
     Dosage: UNK
     Route: 065
  7. HYDROCHLOROTHIAZIDE [Concomitant]
     Indication: BLOOD PRESSURE ABNORMAL
     Dosage: UNK
     Route: 065

REACTIONS (4)
  - BLOOD PRESSURE INCREASED [None]
  - NAUSEA [None]
  - DIZZINESS [None]
  - VOMITING [None]
